FAERS Safety Report 5793857-3 (Version None)
Quarter: 2008Q2

REPORT INFORMATION
  Report Type: 
  Country: None (occurrence: None)
  Receive Date: 20080627
  Receipt Date: 20080609
  Transmission Date: 20081010
  Serious: No
  Sender: FDA-Public Use
  Company Number: US-BOEHRINGER INGELHEIM GMBH, GERMANY-2008-BP-08960BP

PATIENT
  Age: 84 Year
  Sex: Male

DRUGS (10)
  1. SPIRIVA [Suspect]
     Indication: EMPHYSEMA
     Route: 055
     Dates: start: 20080101
  2. ASPIRIN [Concomitant]
  3. ZESTRIL [Concomitant]
  4. PLAVIX [Concomitant]
  5. SYNTHROID [Concomitant]
  6. METOPROLOL [Concomitant]
  7. INDAPAMIEE DIURETIC [Concomitant]
  8. ATENOLOL [Concomitant]
  9. PRAVASTIN [Concomitant]
  10. COUMADIN [Concomitant]

REACTIONS (1)
  - DYSPHONIA [None]
